FAERS Safety Report 11790096 (Version 1)
Quarter: 2015Q4

REPORT INFORMATION
  Report Type: Spontaneous
  Country: ES (occurrence: ES)
  Receive Date: 20151201
  Receipt Date: 20151201
  Transmission Date: 20160305
  Serious: Yes (Other)
  Sender: FDA-Public Use
  Company Number: ES-JNJFOC-20151124859

PATIENT
  Age: 57 Year
  Sex: Male
  Weight: 79 kg

DRUGS (3)
  1. ISONIAZID. [Concomitant]
     Active Substance: ISONIAZID
     Route: 065
     Dates: start: 201401
  2. REMICADE [Suspect]
     Active Substance: INFLIXIMAB
     Indication: ANKYLOSING SPONDYLITIS
     Route: 042
     Dates: start: 201406
  3. REMICADE [Suspect]
     Active Substance: INFLIXIMAB
     Indication: ANKYLOSING SPONDYLITIS
     Route: 042
     Dates: start: 201502, end: 201502

REACTIONS (2)
  - Infusion related reaction [Unknown]
  - Sinus tachycardia [Unknown]

NARRATIVE: CASE EVENT DATE: 201502
